FAERS Safety Report 10608216 (Version 1)
Quarter: 2014Q4

REPORT INFORMATION
  Report Type: Spontaneous
  Country: IT (occurrence: IT)
  Receive Date: 20141125
  Receipt Date: 20141125
  Transmission Date: 20150529
  Serious: Yes (Hospitalization)
  Sender: FDA-Public Use
  Company Number: IT-TEVA-523911ISR

PATIENT
  Age: 72 Year
  Sex: Male

DRUGS (13)
  1. TACHIDOL 500 MG/30MG [Concomitant]
  2. ETOPOSIDE TEVA [Suspect]
     Active Substance: ETOPOSIDE
     Indication: LUNG NEOPLASM MALIGNANT
     Dosage: 150 MILLIGRAM DAILY;
     Route: 041
     Dates: start: 20140709, end: 20141105
  3. UROREC 4 MG [Concomitant]
  4. MOVICOL 13.8 G [Concomitant]
  5. RAMIPRIL. [Concomitant]
     Active Substance: RAMIPRIL
  6. ANTRA [Concomitant]
     Active Substance: OMEPRAZOLE
  7. CLEXANE [Concomitant]
     Active Substance: ENOXAPARIN SODIUM
  8. SOLDESAM 0.2% [Concomitant]
  9. FOSTER 100/6 MCG [Concomitant]
  10. LASIX 25 MG [Concomitant]
  11. CARBOPLATINO TEVA [Suspect]
     Active Substance: CARBOPLATIN
     Indication: LUNG NEOPLASM MALIGNANT
     Dosage: 400 MILLIGRAM DAILY;
     Route: 041
     Dates: start: 20140709, end: 20141105
  12. CORDARONE [Concomitant]
     Active Substance: AMIODARONE HYDROCHLORIDE
  13. SPIRIVA [Concomitant]
     Active Substance: TIOTROPIUM BROMIDE MONOHYDRATE

REACTIONS (3)
  - Thrombocytopenia [Recovering/Resolving]
  - Neutropenia [Recovering/Resolving]
  - Pneumonitis [Recovering/Resolving]

NARRATIVE: CASE EVENT DATE: 20141114
